FAERS Safety Report 8978138 (Version 2)
Quarter: 2013Q2

REPORT INFORMATION
  Report Type: Spontaneous
  Country: ES (occurrence: ES)
  Receive Date: 20121220
  Receipt Date: 20130429
  Transmission Date: 20140414
  Serious: Yes (Hospitalization)
  Sender: FDA-Public Use
  Company Number: PHHY2012ES116263

PATIENT
  Age: 63 Year
  Sex: Female

DRUGS (5)
  1. RAMIPRIL [Suspect]
  2. SPIRONOLACTONE [Suspect]
  3. BISOPROLOL [Suspect]
  4. DIGOXIN [Suspect]
  5. FUROSEMID [Concomitant]

REACTIONS (7)
  - Atrioventricular block [Unknown]
  - Hyperkalaemia [Unknown]
  - Hypophagia [Unknown]
  - Diarrhoea [Unknown]
  - Nausea [Unknown]
  - Muscular weakness [Unknown]
  - Blood sodium decreased [Unknown]
